FAERS Safety Report 8132034-8 (Version None)
Quarter: 2012Q1

REPORT INFORMATION
  Report Type: 
  Country: None (occurrence: None)
  Receive Date: 20120207
  Receipt Date: 20120124
  Transmission Date: 20120608
  Serious: Yes (Other)
  Sender: FDA-Public Use
  Company Number: JPI-P-009499

PATIENT
  Age: 41 Year
  Sex: Female
  Weight: 79.3795 kg

DRUGS (20)
  1. ESCITALOPRAM OXALATE [Concomitant]
  2. CITALOPRAM HYDROBROMIDE [Concomitant]
  3. XYREM [Suspect]
  4. OMEPRAZOLE [Concomitant]
  5. XYREM [Suspect]
     Indication: NARCOLEPSY
     Dosage: SEE IMAGE
     Route: 048
     Dates: end: 20091027
  6. XYREM [Suspect]
     Indication: NARCOLEPSY
     Dosage: SEE IMAGE
     Route: 048
     Dates: start: 20100111, end: 20100101
  7. XYREM [Suspect]
     Indication: NARCOLEPSY
     Dosage: SEE IMAGE
     Route: 048
     Dates: start: 20100106, end: 20100110
  8. XYREM [Suspect]
     Indication: NARCOLEPSY
     Dosage: SEE IMAGE
     Route: 048
     Dates: end: 20091027
  9. XYREM [Suspect]
     Indication: NARCOLEPSY
     Dosage: SEE IMAGE
     Route: 048
     Dates: start: 20100106, end: 20100110
  10. XYREM [Suspect]
     Indication: NARCOLEPSY
     Dosage: SEE IMAGE
     Route: 048
     Dates: start: 20091101, end: 20091215
  11. XYREM [Suspect]
     Indication: NARCOLEPSY
     Dosage: SEE IMAGE
     Route: 048
     Dates: start: 20091101, end: 20091215
  12. XYREM [Suspect]
     Indication: NARCOLEPSY
     Dosage: SEE IMAGE
     Route: 048
     Dates: start: 20100111, end: 20100101
  13. XYREM [Suspect]
     Indication: NARCOLEPSY
     Dosage: SEE IMAGE
     Route: 048
     Dates: end: 20100101
  14. XYREM [Suspect]
     Indication: NARCOLEPSY
     Dosage: SEE IMAGE
     Route: 048
     Dates: start: 20060717
  15. XYREM [Suspect]
     Indication: NARCOLEPSY
     Dosage: SEE IMAGE
     Route: 048
     Dates: start: 20111201
  16. XYREM [Suspect]
     Indication: NARCOLEPSY
     Dosage: SEE IMAGE
     Route: 048
     Dates: start: 20111018
  17. CLOMIPRAMINE HCL [Suspect]
     Indication: DEPRESSION
     Dosage: (UNKNOWN)
     Dates: end: 20090901
  18. IRON [Concomitant]
  19. LANSOPRAZOLE [Concomitant]
  20. ESOMEPRAZOLE [Concomitant]

REACTIONS (8)
  - HUNGER [None]
  - INITIAL INSOMNIA [None]
  - PAIN [None]
  - DEPRESSION [None]
  - BREAST CANCER [None]
  - VOMITING [None]
  - WEIGHT INCREASED [None]
  - INFLUENZA LIKE ILLNESS [None]
